FAERS Safety Report 15378312 (Version 2)
Quarter: 2019Q1

REPORT INFORMATION
  Report Type: Spontaneous
  Country: JP (occurrence: JP)
  Receive Date: 20180913
  Receipt Date: 20190225
  Transmission Date: 20190417
  Serious: Yes (Other)
  Sender: FDA-Public Use
  Company Number: JP-TEVA-2018-JP-004970J

PATIENT
  Age: 63 Year
  Sex: Female

DRUGS (4)
  1. E KEPPRA [Concomitant]
     Active Substance: LEVETIRACETAM
     Indication: EPILEPSY
     Dosage: 2 DOSAGE FORMS DAILY;
     Route: 048
  2. FENOFIBRATE TABLET 80MG TAKEDA TEVA [Suspect]
     Active Substance: FENOFIBRATE
     Indication: PRODUCT USED FOR UNKNOWN INDICATION
     Dosage: DOSAGE IS UNKNOWN
     Route: 048
     Dates: end: 201809
  3. GRANDAXIN [Concomitant]
     Active Substance: TOFISOPAM
     Indication: MENOPAUSAL SYMPTOMS
     Dosage: 3 DOSAGE FORMS DAILY;
     Route: 048
  4. METGLUCO [Concomitant]
     Active Substance: METFORMIN HYDROCHLORIDE
     Indication: DIABETES MELLITUS
     Dosage: 2 DOSAGE FORMS DAILY;
     Route: 048
     Dates: start: 20180511

REACTIONS (2)
  - Face oedema [Recovered/Resolved]
  - White blood cell count increased [Unknown]

NARRATIVE: CASE EVENT DATE: 20180901
